FAERS Safety Report 19241432 (Version 2)
Quarter: 2022Q3

REPORT INFORMATION
  Report Type: Report from Study
  Country: US (occurrence: US)
  Receive Date: 20210511
  Receipt Date: 20220824
  Transmission Date: 20221026
  Serious: No
  Sender: FDA-Public Use
  Company Number: US-NOVARTISTESTPH-NVSC2021US103902

PATIENT
  Sex: Female

DRUGS (1)
  1. GLEEVEC [Suspect]
     Active Substance: IMATINIB MESYLATE
     Indication: Leukaemia
     Dosage: UNK
     Route: 065

REACTIONS (6)
  - Throat irritation [Unknown]
  - Illness [Unknown]
  - Alopecia [Unknown]
  - Rash [Unknown]
  - Asthenia [Unknown]
  - Product coating issue [Unknown]
